FAERS Safety Report 24362311 (Version 1)
Quarter: 2024Q3

REPORT INFORMATION
  Report Type: Spontaneous
  Country: CN (occurrence: CN)
  Receive Date: 20240925
  Receipt Date: 20240925
  Transmission Date: 20241016
  Serious: Yes (Hospitalization)
  Sender: PFIZER
  Company Number: CN-PFIZER INC-PV202400123715

PATIENT
  Age: 72 Year
  Sex: Female

DRUGS (1)
  1. MISOPROSTOL [Suspect]
     Active Substance: MISOPROSTOL
     Indication: Endometritis
     Dosage: 200 UG, 1X/DAY
     Route: 067
     Dates: start: 20240806, end: 20240806

REACTIONS (3)
  - Chills [Recovering/Resolving]
  - Temperature intolerance [Recovering/Resolving]
  - Off label use [Unknown]

NARRATIVE: CASE EVENT DATE: 20240806
